FAERS Safety Report 9813155 (Version 3)
Quarter: 2014Q2

REPORT INFORMATION
  Report Type: Report from Study
  Country: US (occurrence: US)
  Receive Date: 20140113
  Receipt Date: 20140502
  Transmission Date: 20141212
  Serious: Yes (Hospitalization, Other)
  Sender: FDA-Public Use
  Company Number: US-BAYER-2013-134511

PATIENT
  Age: 70 Year
  Sex: Female

DRUGS (2)
  1. NEXAVAR [Suspect]
     Indication: HEPATIC CANCER
     Dosage: 200 MG, QD 25 DAYS
     Route: 048
     Dates: start: 20131023
  2. NEXAVAR [Suspect]
     Indication: HEPATIC CANCER
     Dosage: 4 X 200 MG
     Route: 048

REACTIONS (11)
  - Pain [None]
  - Musculoskeletal stiffness [None]
  - Arthralgia [None]
  - Myalgia [None]
  - Nausea [None]
  - Vomiting [None]
  - Abdominal discomfort [None]
  - Diarrhoea [None]
  - Blood pressure increased [None]
  - Muscular weakness [None]
  - Cerebrovascular accident [None]
